FAERS Safety Report 8875974 (Version 1)
Quarter: 2012Q4

REPORT INFORMATION
  Report Type: 
  Country: IT (occurrence: IT)
  Receive Date: 20121030
  Receipt Date: 20121030
  Transmission Date: 20130627
  Serious: Yes (Other)
  Sender: FDA-Public Use
  Company Number: PHHY2012IT092725

PATIENT
  Age: 73 Year
  Sex: Male

DRUGS (1)
  1. CEFTRIAXONE [Suspect]
     Indication: BRONCHITIS
     Dosage: 1 g, daily
     Route: 030
     Dates: start: 20121004, end: 20121004

REACTIONS (2)
  - Syncope [Recovering/Resolving]
  - Presyncope [Recovered/Resolved]
